FAERS Safety Report 19469482 (Version 1)
Quarter: 2021Q2

REPORT INFORMATION
  Report Type: Other
  Country: US (occurrence: US)
  Receive Date: 20210629
  Receipt Date: 20210629
  Transmission Date: 20210717
  Serious: Yes (Life-Threatening, Hospitalization)
  Sender: FDA-Public Use
  Company Number: US-ROCHE-2852850

PATIENT
  Age: 66 Year
  Sex: Male
  Weight: 65.83 kg

DRUGS (5)
  1. OXYBUTIN [Concomitant]
     Active Substance: OXYBUTYNIN
     Route: 048
  2. OCREVUS [Suspect]
     Active Substance: OCRELIZUMAB
     Indication: PROGRESSIVE MULTIPLE SCLEROSIS
     Dosage: YES
     Route: 042
  3. MIRTAZAPINE. [Concomitant]
     Active Substance: MIRTAZAPINE
     Route: 048
  4. TAMSULOSIN [Concomitant]
     Active Substance: TAMSULOSIN
     Route: 048
  5. DALFAMPRIDINE. [Concomitant]
     Active Substance: DALFAMPRIDINE
     Dosage: 1 PILL IN THE MORNING AND 1 PILL AT NIGHT
     Route: 048

REACTIONS (6)
  - Anaemia [Recovered/Resolved]
  - Walking disability [Unknown]
  - Illness [Unknown]
  - Lethargy [Unknown]
  - Internal haemorrhage [Unknown]
  - Off label use [Unknown]

NARRATIVE: CASE EVENT DATE: 202105
